FAERS Safety Report 10543739 (Version 2)
Quarter: 2014Q4

REPORT INFORMATION
  Report Type: Spontaneous
  Country: US (occurrence: None)
  Receive Date: 20141010
  Receipt Date: 20141205
  Transmission Date: 20150529
  Serious: Yes (Other)
  Sender: FDA-Public Use
  Company Number: 163-POMAL-14070053

PATIENT
  Age: 81 Year
  Sex: Female

DRUGS (10)
  1. TENORMIN [Concomitant]
     Active Substance: ATENOLOL
  2. COZAAR [Concomitant]
     Active Substance: LOSARTAN POTASSIUM
  3. HYDROCODONE -ACETAMINOPHEN (PARACETAMOL HYDROCODONE) [Concomitant]
  4. ZOFRAN (ONDANSETRON) [Concomitant]
  5. NORVASC [Concomitant]
     Active Substance: AMLODIPINE BESYLATE
  6. ZOCOR [Concomitant]
     Active Substance: SIMVASTATIN
  7. LOPID [Concomitant]
     Active Substance: GEMFIBROZIL
  8. POMALYST [Suspect]
     Active Substance: POMALIDOMIDE
     Indication: PLASMA CELL MYELOMA
     Dosage: 4 MG, 21 IN 21 D
     Route: 048
     Dates: start: 20140605
  9. CARDURA [Concomitant]
     Active Substance: DOXAZOSIN MESYLATE
  10. ASPIRIN (ACETYLSALICYLIC ACID) [Concomitant]
     Active Substance: ASPIRIN

REACTIONS (7)
  - Diarrhoea [None]
  - Visual impairment [None]
  - Fatigue [None]
  - Myalgia [None]
  - Arthralgia [None]
  - Asthenia [None]
  - Nausea [None]

NARRATIVE: CASE EVENT DATE: 20140615
